FAERS Safety Report 20381006 (Version 1)
Quarter: 2022Q1

REPORT INFORMATION
  Report Type: Spontaneous
  Country: US (occurrence: US)
  Receive Date: 20220127
  Receipt Date: 20220127
  Transmission Date: 20220423
  Serious: No
  Sender: FDA-Public Use
  Company Number: US-SA-SAC20220122000261

PATIENT
  Sex: Female

DRUGS (16)
  1. AUBAGIO [Suspect]
     Active Substance: TERIFLUNOMIDE
     Dosage: 14 MG , QD
     Route: 048
     Dates: start: 2017
  2. MELATONIN [Concomitant]
     Active Substance: MELATONIN
  3. ALLEGRA ALLERGY [Concomitant]
     Active Substance: FEXOFENADINE HYDROCHLORIDE
  4. PRILOSEC [Concomitant]
     Active Substance: OMEPRAZOLE MAGNESIUM
     Indication: Gastrooesophageal reflux disease
  5. .ALPHA.-TOCOPHEROL [Concomitant]
     Active Substance: .ALPHA.-TOCOPHEROL
  6. CALCIUM 600 MG WITH VITAMIN D [Concomitant]
  7. POTASSIUM [Concomitant]
     Active Substance: POTASSIUM
  8. ATENOLOL [Concomitant]
     Active Substance: ATENOLOL
  9. BLACK COHOSH [Concomitant]
     Active Substance: BLACK COHOSH
  10. OXYBUTYNIN CHLORIDE [Concomitant]
     Active Substance: OXYBUTYNIN CHLORIDE
  11. POTASSIUM GLUCONATE [Concomitant]
     Active Substance: POTASSIUM GLUCONATE
  12. TEMAZEPAM [Concomitant]
     Active Substance: TEMAZEPAM
  13. HYDROCHLOROTHIAZIDE\TRIAMTERENE [Concomitant]
     Active Substance: HYDROCHLOROTHIAZIDE\TRIAMTERENE
  14. VITAMIN D3 [Concomitant]
     Active Substance: CHOLECALCIFEROL
  15. OMEGA 3 [SALMON OIL] [Concomitant]
  16. DIMETHYL SULFONE [Concomitant]
     Active Substance: DIMETHYL SULFONE

REACTIONS (1)
  - Hepatic enzyme increased [Unknown]
